FAERS Safety Report 24711119 (Version 4)
Quarter: 2025Q2

REPORT INFORMATION
  Report Type: Report from Study
  Country: DE (occurrence: DE)
  Receive Date: 20241209
  Receipt Date: 20250604
  Transmission Date: 20250716
  Serious: Yes (Hospitalization, Other)
  Sender: SANDOZ
  Company Number: DE-002147023-NVSC2021DE139177

PATIENT
  Sex: Male

DRUGS (4)
  1. ACEMETACIN [Suspect]
     Active Substance: ACEMETACIN
     Indication: Product used for unknown indication
     Route: 065
     Dates: start: 20200120, end: 20200720
  2. ETANERCEPT [Suspect]
     Active Substance: ETANERCEPT
     Dosage: 50MG 1X/WEEK
     Route: 065
     Dates: start: 20220725, end: 20240721
  3. ETANERCEPT [Suspect]
     Active Substance: ETANERCEPT
     Indication: Spondylitis
     Route: 065
     Dates: start: 20200715, end: 20220619
  4. ETANERCEPT [Suspect]
     Active Substance: ETANERCEPT
     Indication: Psoriatic arthropathy
     Route: 065
     Dates: start: 20220725, end: 20240721

REACTIONS (9)
  - Nephrolithiasis [Recovered/Resolved]
  - Renal colic [Unknown]
  - Pregnancy of partner [Recovered/Resolved]
  - Live birth [Recovered/Resolved]
  - Nasopharyngitis [Unknown]
  - Haemorrhoids thrombosed [Unknown]
  - Nasopharyngitis [Unknown]
  - Pruritus [Unknown]
  - Paternal exposure before pregnancy [Unknown]

NARRATIVE: CASE EVENT DATE: 20200720
